FAERS Safety Report 6246050-4 (Version None)
Quarter: 2009Q2

REPORT INFORMATION
  Report Type: 
  Country: None (occurrence: None)
  Receive Date: 20090626
  Receipt Date: 20090224
  Transmission Date: 20091009
  Serious: No
  Sender: FDA-Public Use
  Company Number: A0762082A

PATIENT
  Age: 52 Year
  Sex: Female

DRUGS (3)
  1. IMITREX [Suspect]
     Indication: DRUG USE FOR UNKNOWN INDICATION
     Dosage: 50MG AS REQUIRED
     Route: 048
     Dates: start: 20060502
  2. PREVACID [Concomitant]
  3. METRONIDAZOLE [Concomitant]

REACTIONS (3)
  - DRUG INEFFECTIVE [None]
  - FEELING ABNORMAL [None]
  - PRODUCT QUALITY ISSUE [None]
